FAERS Safety Report 9675454 (Version 1)
Quarter: 2013Q4

REPORT INFORMATION
  Report Type: Spontaneous
  Country: BR (occurrence: BR)
  Receive Date: 20131107
  Receipt Date: 20131107
  Transmission Date: 20140711
  Serious: Yes (Other)
  Sender: FDA-Public Use
  Company Number: BR-PFIZER INC-2013312609

PATIENT
  Age: 48 Year
  Sex: Male

DRUGS (1)
  1. XALATAN [Suspect]
     Indication: GLAUCOMA
     Dosage: 3 UG (1 DROP IN EACH EYE), UNSPECIFIED FREQUENCY
     Route: 047
     Dates: start: 1994, end: 2006

REACTIONS (2)
  - Eye disorder [Unknown]
  - Intraocular pressure increased [Unknown]
